FAERS Safety Report 4869877-X (Version None)
Quarter: 2005Q4

REPORT INFORMATION
  Report Type: 
  Country: None (occurrence: None)
  Receive Date: 20051230
  Receipt Date: 20051213
  Transmission Date: 20060501
  Serious: Yes (Hospitalization)
  Sender: FDA-Public Use
  Company Number: US-MERCK-0512USA02015

PATIENT
  Age: 65 Year
  Sex: Male

DRUGS (2)
  1. PROSCAR [Suspect]
     Indication: BENIGN PROSTATIC HYPERPLASIA
     Route: 048
     Dates: start: 20030101, end: 20051201
  2. DETROL [Concomitant]
     Route: 065

REACTIONS (4)
  - GYNAECOMASTIA [None]
  - LIBIDO DECREASED [None]
  - PROSTATIC DISORDER [None]
  - WEIGHT INCREASED [None]
